FAERS Safety Report 25166353 (Version 1)
Quarter: 2025Q2

REPORT INFORMATION
  Report Type: Spontaneous
  Country: AU (occurrence: AU)
  Receive Date: 20250407
  Receipt Date: 20250407
  Transmission Date: 20250716
  Serious: Yes (Other)
  Sender: ALKEM
  Company Number: AU-ALKEM LABORATORIES LIMITED-AU-ALKEM-2025-03399

PATIENT
  Age: 67 Year
  Sex: Female

DRUGS (2)
  1. ROSUVASTATIN [Suspect]
     Active Substance: ROSUVASTATIN
     Indication: Product used for unknown indication
     Route: 065
  2. WARFARIN SODIUM [Suspect]
     Active Substance: WARFARIN SODIUM
     Indication: Product used for unknown indication
     Route: 065

REACTIONS (8)
  - Haematemesis [Unknown]
  - Melaena [Unknown]
  - Acute kidney injury [Unknown]
  - Anticoagulation drug level above therapeutic [Unknown]
  - Electrolyte imbalance [Unknown]
  - Hypotension [Unknown]
  - Tachycardia [Unknown]
  - Liver function test abnormal [Unknown]
